FAERS Safety Report 5695781-3 (Version None)
Quarter: 2008Q2

REPORT INFORMATION
  Report Type: 
  Country: None (occurrence: None)
  Receive Date: 20080407
  Receipt Date: 20080403
  Transmission Date: 20081010
  Serious: Yes (Hospitalization)
  Sender: FDA-Public Use
  Company Number: US-BAYER-200810540BCC

PATIENT
  Age: 56 Year
  Sex: Female

DRUGS (20)
  1. ASPIRIN [Suspect]
     Indication: DRUG USE FOR UNKNOWN INDICATION
     Route: 065
  2. VARENICLINE TABLETS [Suspect]
     Indication: DRUG USE FOR UNKNOWN INDICATION
     Route: 065
  3. LORTAB [Suspect]
     Indication: DRUG USE FOR UNKNOWN INDICATION
     Route: 048
  4. LORTAB [Suspect]
     Route: 048
  5. LORTAB [Suspect]
     Route: 048
  6. RIVAROXABAN [Suspect]
     Indication: DRUG USE FOR UNKNOWN INDICATION
     Route: 065
  7. BENADRYL [Suspect]
     Route: 065
  8. PLAVIX [Suspect]
     Route: 065
  9. FOLTX [Concomitant]
  10. ACETYLSALICYLIC ACID SRT [Concomitant]
  11. POTASSIUM CHLORIDE [Concomitant]
  12. CALCIUM PLUS VITAMIN D [Concomitant]
  13. NITROGLYCERIN [Concomitant]
  14. ISOSORBIDE MONONITRATE [Concomitant]
  15. PAROXETINE HCL [Concomitant]
  16. NEXIUM [Concomitant]
  17. FLEXERIL [Concomitant]
  18. LISINOPRIL [Concomitant]
  19. TOPROL-XL [Concomitant]
  20. PRAVASTATIN [Concomitant]

REACTIONS (2)
  - DRUG INTERACTION [None]
  - MENTAL STATUS CHANGES [None]
